FAERS Safety Report 8207787-0 (Version None)
Quarter: 2012Q1

REPORT INFORMATION
  Report Type: 
  Country: None (occurrence: None)
  Receive Date: 20120314
  Receipt Date: 20120229
  Transmission Date: 20120608
  Serious: Yes (Other)
  Sender: FDA-Public Use
  Company Number: US-SANOFI-AVENTIS-2012SA016291

PATIENT
  Age: 50 Year
  Sex: Male
  Weight: 108.86 kg

DRUGS (7)
  1. WELLBUTRIN [Suspect]
     Indication: DEPRESSION
  2. CITALOPRAM HYDROBROMIDE [Suspect]
     Indication: ANXIETY
  3. ATENOLOL [Suspect]
  4. NEURONTIN [Suspect]
  5. AMLODIPINE [Suspect]
  6. HYDROCHLOROTHIAZIDE [Suspect]
  7. AMBIEN [Suspect]
     Route: 048

REACTIONS (4)
  - INTERVERTEBRAL DISC PROTRUSION [None]
  - EXOSTOSIS [None]
  - BLOOD PRESSURE DECREASED [None]
  - SEXUAL DYSFUNCTION [None]
